FAERS Safety Report 4732627-1 (Version None)
Quarter: 2005Q3

REPORT INFORMATION
  Report Type: 
  Country: None (occurrence: None)
  Receive Date: 20050803
  Receipt Date: 20050721
  Transmission Date: 20060218
  Serious: Yes (Other)
  Sender: FDA-Public Use
  Company Number: DE-JNJFOC-20050704917

PATIENT
  Sex: Female

DRUGS (3)
  1. TOPAMAX [Suspect]
     Indication: EPILEPSY
     Route: 048
  2. LEPONEX [Interacting]
     Indication: DRUG USE FOR UNKNOWN INDICATION
     Route: 048
  3. VALPROIC ACID [Concomitant]
     Indication: EPILEPSY
     Route: 048

REACTIONS (2)
  - DRUG INTERACTION [None]
  - INTRAOCULAR PRESSURE INCREASED [None]
